FAERS Safety Report 20358821 (Version 1)
Quarter: 2022Q1

REPORT INFORMATION
  Report Type: Spontaneous
  Country: NL (occurrence: NL)
  Receive Date: 20220120
  Receipt Date: 20220120
  Transmission Date: 20220423
  Serious: Yes (Other)
  Sender: FDA-Public Use
  Company Number: None

PATIENT
  Sex: Male
  Weight: 3.8 kg

DRUGS (3)
  1. CITALOPRAM HYDROBROMIDE [Suspect]
     Active Substance: CITALOPRAM HYDROBROMIDE
     Indication: Exposure during pregnancy
     Dosage: ACTUAL: 40 MG, QD (1X PER DAY 2 PIECES)
     Route: 064
  2. OMEPRAZOLE [Concomitant]
     Active Substance: OMEPRAZOLE
     Indication: Product used for unknown indication
     Dosage: 20 MG
  3. CLINDAMYCIN [Concomitant]
     Active Substance: CLINDAMYCIN
     Indication: Product used for unknown indication
     Dosage: 900 MG, Q8HR (3X/DAY 900 MILLIGRAM IV ; 12MG/ML)
     Route: 065

REACTIONS (5)
  - Neonatal respiratory failure [Recovered/Resolved]
  - Exposure during pregnancy [Unknown]
  - Syncope [Recovered/Resolved]
  - Bradycardia [Recovered/Resolved]
  - Hypertonia [Recovered/Resolved]
